FAERS Safety Report 7503397-9 (Version None)
Quarter: 2011Q2

REPORT INFORMATION
  Report Type: 
  Country: None (occurrence: None)
  Receive Date: 20110525
  Receipt Date: 20110516
  Transmission Date: 20111010
  Serious: Yes (Hospitalization, Other)
  Sender: FDA-Public Use
  Company Number: B0684570A

PATIENT
  Sex: Male

DRUGS (4)
  1. TELZIR [Concomitant]
     Route: 065
     Dates: start: 20041101
  2. NORVIR [Concomitant]
     Route: 065
     Dates: start: 20041101
  3. ZIAGEN [Suspect]
     Indication: HIV INFECTION
     Route: 065
     Dates: start: 20000204
  4. REYATAZ [Concomitant]
     Route: 065
     Dates: start: 20090501

REACTIONS (6)
  - HAEMATEMESIS [None]
  - PORTAL HYPERTENSION [None]
  - LIVER DISORDER [None]
  - OBESITY [None]
  - OESOPHAGEAL VARICES HAEMORRHAGE [None]
  - SPLENOMEGALY [None]
